FAERS Safety Report 11464355 (Version 2)
Quarter: 2015Q3

REPORT INFORMATION
  Report Type: Spontaneous
  Country: US (occurrence: US)
  Receive Date: 20150831
  Receipt Date: 20150903
  Transmission Date: 20151125
  Serious: No
  Sender: FDA-Public Use
  Company Number: US-ELI_LILLY_AND_COMPANY-US201107003216

PATIENT
  Age: 56 Year
  Sex: Female

DRUGS (3)
  1. CYMBALTA [Suspect]
     Active Substance: DULOXETINE HYDROCHLORIDE
     Indication: BONE PAIN
     Dosage: 30 MG, QD
     Dates: start: 20110629, end: 20110702
  2. CYMBALTA [Suspect]
     Active Substance: DULOXETINE HYDROCHLORIDE
     Dosage: 20 MG, QD
     Dates: start: 20110707
  3. CYMBALTA [Suspect]
     Active Substance: DULOXETINE HYDROCHLORIDE
     Dosage: UNK, QD
     Dates: start: 20110703, end: 20110706

REACTIONS (15)
  - Off label use [Unknown]
  - Gait disturbance [Unknown]
  - Arthralgia [Unknown]
  - Bone pain [Unknown]
  - Rash [Unknown]
  - Dizziness [Unknown]
  - Hypersensitivity [Unknown]
  - Wrong technique in product usage process [Recovered/Resolved]
  - Back disorder [Unknown]
  - Headache [Recovered/Resolved]
  - Back pain [Unknown]
  - Terminal insomnia [Unknown]
  - Pain in extremity [Unknown]
  - Urticaria [Unknown]
  - Product counterfeit [Unknown]

NARRATIVE: CASE EVENT DATE: 20110629
